FAERS Safety Report 24230564 (Version 1)
Quarter: 2024Q3

REPORT INFORMATION
  Report Type: Report from Study
  Country: ES (occurrence: ES)
  Receive Date: 20240821
  Receipt Date: 20240821
  Transmission Date: 20241016
  Serious: Yes (Other)
  Sender: GLAXOSMITHKLINE
  Company Number: None

PATIENT

DRUGS (9)
  1. EPOPROSTENOL SODIUM [Suspect]
     Active Substance: EPOPROSTENOL SODIUM
     Indication: Pulmonary arterial hypertension
     Dosage: 5.9 MG, QD (STRENGTH: 32 NANOGRAM/KILOGRAM/MINUTE (NG/KG/MIN))
     Route: 042
     Dates: start: 202006
  2. SOTATERCEPT [Suspect]
     Active Substance: SOTATERCEPT
     Indication: Pulmonary arterial hypertension
     Dosage: 0.3 MG/KG, Q3W
     Route: 058
     Dates: start: 20240704
  3. AMBRISENTAN [Concomitant]
     Active Substance: AMBRISENTAN
     Indication: Pulmonary arterial hypertension
     Dosage: 10 MG
     Route: 048
     Dates: start: 201312
  4. TADALAFIL [Concomitant]
     Active Substance: TADALAFIL
     Indication: Pulmonary arterial hypertension
     Dosage: 40 MG
     Route: 048
     Dates: start: 201309
  5. ESOMEPRAZOLE [Concomitant]
     Active Substance: ESOMEPRAZOLE
     Indication: Gastrointestinal disorder prophylaxis
     Dosage: UNK
     Route: 048
     Dates: start: 201612
  6. CALCIFEDIOL [Concomitant]
     Active Substance: CALCIFEDIOL
     Indication: Routine health maintenance
     Dosage: 0.27 MG, MO (0.266 MILLIGRAM, QM)
     Route: 048
     Dates: start: 201212
  7. FERROUS GLYCINE SULFATE [Concomitant]
     Active Substance: FERROUS GLYCINE SULFATE
     Indication: Iron deficiency
     Dosage: UNK (100)
     Route: 065
     Dates: start: 202008
  8. CALCIUM CARBONATE\CHOLECALCIFEROL [Concomitant]
     Active Substance: CALCIUM CARBONATE\CHOLECALCIFEROL
     Indication: Osteopenia
     Dosage: UNK (600/1000)
     Route: 048
     Dates: start: 20240222
  9. ACETAMINOPHEN [Concomitant]
     Active Substance: ACETAMINOPHEN
     Indication: Pain
     Dosage: 500 MG, QD (PRN)
     Route: 048

REACTIONS (3)
  - Macular oedema [Recovered/Resolved]
  - Fear [Unknown]
  - Visual impairment [Unknown]

NARRATIVE: CASE EVENT DATE: 20240711
